FAERS Safety Report 21426083 (Version 10)
Quarter: 2024Q4

REPORT INFORMATION
  Report Type: Report from Study
  Country: MX (occurrence: MX)
  Receive Date: 20221008
  Receipt Date: 20241024
  Transmission Date: 20250115
  Serious: Yes (Hospitalization, Other)
  Sender: NOVARTIS
  Company Number: MX-NOVARTISPH-NVSC2022MX227655

PATIENT
  Age: 44 Year
  Sex: Female
  Weight: 62 kg

DRUGS (5)
  1. GILENYA [Suspect]
     Active Substance: FINGOLIMOD HYDROCHLORIDE
     Indication: Multiple sclerosis
     Dosage: 0.5 MG
     Route: 048
     Dates: start: 201806
  2. GILENYA [Suspect]
     Active Substance: FINGOLIMOD HYDROCHLORIDE
     Dosage: 0.5 MG, QD
     Route: 048
     Dates: start: 20220313, end: 202404
  3. GILENYA [Suspect]
     Active Substance: FINGOLIMOD HYDROCHLORIDE
     Dosage: 1 DOSAGE FORM, QD (1 OF 0.5 MG)
     Route: 048
     Dates: end: 202405
  4. CORTISONE [Suspect]
     Active Substance: CORTISONE
     Indication: Multiple sclerosis relapse
     Dosage: 3 G
     Route: 065
  5. CALCIUM [Concomitant]
     Active Substance: CALCIUM
     Indication: Bone disorder
     Dosage: 1 DOSAGE FORM, QD (TABLET)
     Route: 048
     Dates: start: 2018

REACTIONS (14)
  - Multiple sclerosis relapse [Recovering/Resolving]
  - Hypoaesthesia [Unknown]
  - Foreign body sensation in eyes [Unknown]
  - Limb mass [Unknown]
  - Cardiac disorder [Not Recovered/Not Resolved]
  - Arrhythmia [Recovered/Resolved]
  - Pain [Unknown]
  - Gait disturbance [Unknown]
  - Visual impairment [Recovering/Resolving]
  - Facet joint syndrome [Not Recovered/Not Resolved]
  - Muscular weakness [Unknown]
  - Spinal pain [Unknown]
  - Paraesthesia [Unknown]
  - Discomfort [Unknown]

NARRATIVE: CASE EVENT DATE: 20220901
